FAERS Safety Report 4945313-X (Version None)
Quarter: 2006Q1

REPORT INFORMATION
  Report Type: 
  Country: None (occurrence: None)
  Receive Date: 20060315
  Receipt Date: 20060315
  Transmission Date: 20060701
  Serious: Yes (Other)
  Sender: FDA-Public Use
  Company Number: None

PATIENT
  Age: 37 Year
  Sex: Female
  Weight: 41.2773 kg

DRUGS (2)
  1. VANCOMYCIN [Suspect]
     Indication: MITRAL VALVE PROLAPSE
     Dosage: 1 GM IVPB / NS 250 CC
     Route: 042
     Dates: start: 20060306
  2. GENTAMICIN [Suspect]
     Indication: MITRAL VALVE PROLAPSE
     Dosage: 80 MG IVPB
     Route: 042
     Dates: start: 20060306

REACTIONS (2)
  - FLUSHING [None]
  - TACHYCARDIA [None]
